FAERS Safety Report 8558145-0 (Version None)
Quarter: 2012Q3

REPORT INFORMATION
  Report Type: 
  Country: None (occurrence: None)
  Receive Date: 20120801
  Receipt Date: 20120727
  Transmission Date: 20120928
  Serious: Yes (Life-Threatening, Other)
  Sender: FDA-Public Use
  Company Number: US-ASTRAZENECA-2012SE53739

PATIENT
  Age: 28 Year
  Sex: Female

DRUGS (1)
  1. SEROQUEL [Suspect]
     Indication: BIPOLAR DISORDER
     Route: 048

REACTIONS (5)
  - ANXIETY [None]
  - SUICIDE ATTEMPT [None]
  - OVERDOSE [None]
  - NERVOUSNESS [None]
  - DRUG DOSE OMISSION [None]
